FAERS Safety Report 14515353 (Version 1)
Quarter: 2018Q1

REPORT INFORMATION
  Report Type: Report from Study
  Country: US (occurrence: US)
  Receive Date: 20180210
  Receipt Date: 20180210
  Transmission Date: 20180509
  Serious: Yes (Other)
  Sender: FDA-Public Use
  Company Number: US-TAKEDA-2018TUS000476

PATIENT
  Sex: Female

DRUGS (2)
  1. VORTIOXETINE. [Suspect]
     Active Substance: VORTIOXETINE
     Indication: PRODUCT USED FOR UNKNOWN INDICATION
     Dosage: UNK
     Route: 065
  2. VORTIOXETINE. [Suspect]
     Active Substance: VORTIOXETINE
     Dosage: 20 MG, UNK
     Route: 065

REACTIONS (8)
  - Depression [Recovered/Resolved]
  - Thinking abnormal [Recovered/Resolved]
  - Crying [Recovered/Resolved]
  - Myocardial infarction [Recovered/Resolved]
  - Inability to afford medication [Unknown]
  - Suicidal ideation [Recovered/Resolved]
  - Blood pressure increased [Recovered/Resolved]
  - Lethargy [Recovered/Resolved]
